FAERS Safety Report 6489953-8 (Version None)
Quarter: 2009Q4

REPORT INFORMATION
  Report Type: 
  Country: None (occurrence: None)
  Receive Date: 20091211
  Receipt Date: 20091126
  Transmission Date: 20100525
  Serious: Yes (Hospitalization)
  Sender: FDA-Public Use
  Company Number: PHHY2009JP52182

PATIENT
  Sex: Male
  Weight: 69 kg

DRUGS (5)
  1. DIOVAN [Suspect]
     Dosage: 160 MG, ONCE DAILY
     Route: 048
     Dates: start: 20071214, end: 20080227
  2. AMLODIN [Concomitant]
     Indication: HYPERTENSION
     Dosage: 5 MG
     Route: 048
     Dates: start: 20021028
  3. KERLONG [Concomitant]
     Indication: HYPERTENSION
     Dosage: 5 MG
     Route: 048
     Dates: start: 20021028, end: 20080227
  4. VESTURIT [Concomitant]
     Dosage: 400 MG
     Route: 048
     Dates: start: 20021028
  5. PLAVIX [Concomitant]
     Dosage: 75 MG
     Route: 048
     Dates: start: 20080318

REACTIONS (1)
  - CEREBRAL INFARCTION [None]
